FAERS Safety Report 10225524 (Version 1)
Quarter: 2014Q2

REPORT INFORMATION
  Report Type: Spontaneous
  Country: US (occurrence: US)
  Receive Date: 20140609
  Receipt Date: 20140609
  Transmission Date: 20141212
  Serious: Yes (Other)
  Sender: FDA-Public Use
  Company Number: US-ASTELLAS-2014US001343

PATIENT
  Age: 16 Year
  Sex: Female
  Weight: 54 kg

DRUGS (1)
  1. PROGRAF [Suspect]
     Indication: LIVER TRANSPLANT
     Dosage: 2MG IN THE MORNING AND 1 MG IN THE EVENING EVERY OTHER DAY AND 2 MG IN EVENING ON ALTERNATING DAY
     Route: 048
     Dates: start: 2008

REACTIONS (3)
  - Drug ineffective [Unknown]
  - Liver transplant rejection [Unknown]
  - Viral infection [Unknown]
